FAERS Safety Report 18221369 (Version 2)
Quarter: 2020Q3

REPORT INFORMATION
  Report Type: Spontaneous
  Country: IT (occurrence: IT)
  Receive Date: 20200902
  Receipt Date: 20200904
  Transmission Date: 20201103
  Serious: Yes (Life-Threatening, Other)
  Sender: FDA-Public Use
  Company Number: IT-MYLANLABS-2020M1074921

PATIENT
  Age: 49 Year
  Sex: Female

DRUGS (4)
  1. PROMAZINE [Concomitant]
     Active Substance: PROMAZINE
     Indication: PSYCHOTIC DISORDER
     Dosage: 60 GTT DROPS, QD
     Route: 048
  2. DIAZEPAM. [Suspect]
     Active Substance: DIAZEPAM
     Indication: PRODUCT USED FOR UNKNOWN INDICATION
     Dosage: UNK
     Route: 048
     Dates: start: 20200810, end: 20200810
  3. QUETIAPINE. [Concomitant]
     Active Substance: QUETIAPINE
     Indication: PSYCHOTIC DISORDER
     Dosage: 600 MILLIGRAM, QD
     Route: 048
  4. PERPHENAZINE. [Concomitant]
     Active Substance: PERPHENAZINE
     Indication: PSYCHOTIC DISORDER
     Dosage: 8 MILLIGRAM, QD
     Route: 048

REACTIONS (6)
  - Alcohol interaction [Recovering/Resolving]
  - Toxicity to various agents [Recovering/Resolving]
  - Drug screen positive [Recovering/Resolving]
  - Blood alcohol increased [Recovering/Resolving]
  - Drug abuse [Unknown]
  - Loss of consciousness [Recovering/Resolving]

NARRATIVE: CASE EVENT DATE: 20200810
